FAERS Safety Report 24129670 (Version 7)
Quarter: 2024Q4

REPORT INFORMATION
  Report Type: Spontaneous
  Country: CA (occurrence: CA)
  Receive Date: 20240724
  Receipt Date: 20241127
  Transmission Date: 20250114
  Serious: Yes (Hospitalization, Other)
  Sender: CELLTRION
  Company Number: CA-PFIZER INC-202400091579

PATIENT

DRUGS (11)
  1. INFLECTRA [Suspect]
     Active Substance: INFLIXIMAB-DYYB
     Indication: Colitis ulcerative
     Dosage: 300 MG, Q 0,2, 6, THEN EVERY 8 WEEKS
     Route: 042
     Dates: start: 20231117
  2. INFLECTRA [Suspect]
     Active Substance: INFLIXIMAB-DYYB
     Dosage: 300 MG, 0,2, 6, THEN EVERY 8 WEEKS
     Route: 042
     Dates: start: 20240222
  3. INFLECTRA [Suspect]
     Active Substance: INFLIXIMAB-DYYB
     Dosage: 300 MG, 0,2, 6, THEN EVERY 8 WEEKS
     Route: 042
     Dates: start: 20240418
  4. INFLECTRA [Suspect]
     Active Substance: INFLIXIMAB-DYYB
     Dosage: 5 MG/KG (300 MG), EVERY 6 WEEKS
     Route: 042
     Dates: start: 20240601
  5. INFLECTRA [Suspect]
     Active Substance: INFLIXIMAB-DYYB
     Dosage: 300MG, EVERY 6 WEEKS
     Route: 042
     Dates: start: 20240712
  6. INFLECTRA [Suspect]
     Active Substance: INFLIXIMAB-DYYB
     Dosage: 600 MG, EVERY 6 WEEKS
     Route: 042
     Dates: start: 20240823, end: 20240823
  7. INFLECTRA [Suspect]
     Active Substance: INFLIXIMAB-DYYB
     Dosage: 600 MG, EVERY 4 WEEKS, (10MG/KG, EVERY 4 WEEKS )
     Route: 042
     Dates: start: 20240921
  8. INFLECTRA [Suspect]
     Active Substance: INFLIXIMAB-DYYB
     Dosage: 10 MG/KG, EVERY 4 WEEKS (RECEIVED HER OCT INFLECTRA IN HOSPITAL)
     Route: 042
     Dates: start: 20241019
  9. INFLECTRA [Suspect]
     Active Substance: INFLIXIMAB-DYYB
     Dosage: 600 MG AFTER 4 WEEKS (10 MG/KG)
     Route: 042
     Dates: start: 20241116
  10. PREDNISONE [Concomitant]
     Active Substance: PREDNISONE
     Dosage: UNK
  11. PREDNISONE [Concomitant]
     Active Substance: PREDNISONE
     Dosage: 1 DF

REACTIONS (5)
  - Colitis ischaemic [Recovered/Resolved]
  - Condition aggravated [Recovering/Resolving]
  - Cataract [Recovered/Resolved]
  - Rash [Unknown]
  - Off label use [Unknown]

NARRATIVE: CASE EVENT DATE: 20240101
